FAERS Safety Report 8837988 (Version 2)
Quarter: 2013Q1

REPORT INFORMATION
  Report Type: Report from Study
  Country: JP (occurrence: JP)
  Receive Date: 20121012
  Receipt Date: 20130207
  Transmission Date: 20140127
  Serious: Yes (Death)
  Sender: FDA-Public Use
  Company Number: JP-EISAI INC-E7389-02038-CLI-JP

PATIENT
  Age: 63 Year
  Sex: Female
  Weight: 45 kg

DRUGS (7)
  1. HALAVEN [Suspect]
     Indication: BREAST CANCER RECURRENT
     Route: 041
     Dates: start: 20110909, end: 20110916
  2. HALAVEN [Suspect]
     Indication: METASTASES TO LIVER
  3. DECADRON [Concomitant]
     Indication: PROPHYLAXIS
     Route: 041
  4. PROTECADIN [Concomitant]
     Route: 048
  5. URSO [Concomitant]
     Route: 048
  6. WARFARIN [Concomitant]
     Route: 048
  7. MAGMITT [Concomitant]
     Route: 048

REACTIONS (3)
  - Malignant neoplasm progression [Fatal]
  - Blood lactate dehydrogenase abnormal [Unknown]
  - Blood creatine phosphokinase increased [Recovered/Resolved]
